FAERS Safety Report 24631353 (Version 1)
Quarter: 2024Q4

REPORT INFORMATION
  Report Type: Spontaneous
  Country: US (occurrence: None)
  Receive Date: 20241118
  Receipt Date: 20241118
  Transmission Date: 20250115
  Serious: Yes (Hospitalization)
  Sender: Public
  Company Number: None

PATIENT
  Age: 79 Year
  Sex: Male

DRUGS (1)
  1. ABIRATERONE ACETATE [Suspect]
     Active Substance: ABIRATERONE ACETATE
     Indication: Prostate cancer
     Dosage: 1000MG  ONCE DAILY ORAL ?
     Route: 048
     Dates: start: 202403

REACTIONS (2)
  - Nephrolithiasis [None]
  - Urinary tract infection [None]

NARRATIVE: CASE EVENT DATE: 20241112
